FAERS Safety Report 8023229-2 (Version None)
Quarter: 2012Q1

REPORT INFORMATION
  Report Type: 
  Country: None (occurrence: None)
  Receive Date: 20120104
  Receipt Date: 20111227
  Transmission Date: 20120608
  Serious: Yes (Hospitalization, Other)
  Sender: FDA-Public Use
  Company Number: US-ABBOTT-11P-163-0887140-00

PATIENT
  Sex: Male
  Weight: 61.744 kg

DRUGS (1)
  1. HUMIRA [Suspect]
     Indication: CROHN'S DISEASE
     Route: 058
     Dates: start: 20110801, end: 20111023

REACTIONS (4)
  - FISTULA [None]
  - INTESTINAL OBSTRUCTION [None]
  - ABSCESS [None]
  - BACK PAIN [None]
